FAERS Safety Report 11469671 (Version 2)
Quarter: 2015Q3

REPORT INFORMATION
  Report Type: Spontaneous
  Country: US (occurrence: US)
  Receive Date: 20150903
  Receipt Date: 20150903
  Transmission Date: 20151125
  Serious: Yes (Hospitalization)
  Sender: FDA-Public Use
  Company Number: US-ELI_LILLY_AND_COMPANY-US201110005495

PATIENT
  Age: 62 Year
  Sex: Male

DRUGS (4)
  1. CYMBALTA [Suspect]
     Active Substance: DULOXETINE HYDROCHLORIDE
     Indication: DEPRESSION
     Dosage: 30 MG, UNK
     Route: 050
  2. ZYVOX [Concomitant]
     Active Substance: LINEZOLID
  3. ANALGESIC                          /00735901/ [Concomitant]
     Dosage: UNK
     Route: 042
  4. ANTIBIOTICS [Concomitant]
     Active Substance: UNSPECIFIED INGREDIENT

REACTIONS (2)
  - Nausea [Unknown]
  - Wrong technique in product usage process [Recovered/Resolved]
